FAERS Safety Report 4473981-8 (Version None)
Quarter: 2004Q4

REPORT INFORMATION
  Report Type: 
  Country: None (occurrence: None)
  Receive Date: 20041013
  Receipt Date: 20041013
  Transmission Date: 20050328
  Serious: Yes (Life-Threatening, Hospitalization)
  Sender: FDA-Public Use
  Company Number: None

PATIENT
  Age: 7 Year
  Sex: Female
  Weight: 27.8 kg

DRUGS (18)
  1. METHOTREXATE HD MTX 5000 MG/M2 ON STUDY COG# AALLOO31 [Suspect]
     Indication: ACUTE LYMPHOCYTIC LEUKAEMIA
     Dosage: 5000 MG/M2
     Dates: start: 20030206
  2. METHOTREXATE HD MTX 5000 MG/M2 ON STUDY COG# AALLOO31 [Suspect]
     Indication: CHROMOSOME ANALYSIS ABNORMAL
     Dosage: 5000 MG/M2
     Dates: start: 20030206
  3. METHOTREXATE HD MTX 5000 MG/M2 ON STUDY COG# AALLOO31 [Suspect]
     Indication: ACUTE LYMPHOCYTIC LEUKAEMIA
     Dosage: 5000 MG/M2
     Dates: start: 20030403
  4. METHOTREXATE HD MTX 5000 MG/M2 ON STUDY COG# AALLOO31 [Suspect]
     Indication: CHROMOSOME ANALYSIS ABNORMAL
     Dosage: 5000 MG/M2
     Dates: start: 20030403
  5. METHOTREXATE HD MTX 5000 MG/M2 ON STUDY COG# AALLOO31 [Suspect]
     Indication: ACUTE LYMPHOCYTIC LEUKAEMIA
     Dosage: 5000 MG/M2
     Dates: start: 20030410
  6. METHOTREXATE HD MTX 5000 MG/M2 ON STUDY COG# AALLOO31 [Suspect]
     Indication: CHROMOSOME ANALYSIS ABNORMAL
     Dosage: 5000 MG/M2
     Dates: start: 20030410
  7. METHOTREXATE HD MTX 5000 MG/M2 ON STUDY COG# AALLOO31 [Suspect]
     Indication: ACUTE LYMPHOCYTIC LEUKAEMIA
     Dosage: 5000 MG/M2
     Dates: start: 20030630
  8. METHOTREXATE HD MTX 5000 MG/M2 ON STUDY COG# AALLOO31 [Suspect]
     Indication: CHROMOSOME ANALYSIS ABNORMAL
     Dosage: 5000 MG/M2
     Dates: start: 20030630
  9. METHOTREXATE HD MTX 5000 MG/M2 ON STUDY COG# AALLOO31 [Suspect]
     Indication: ACUTE LYMPHOCYTIC LEUKAEMIA
     Dosage: 5000 MG/M2
     Dates: start: 20030714
  10. METHOTREXATE HD MTX 5000 MG/M2 ON STUDY COG# AALLOO31 [Suspect]
     Indication: CHROMOSOME ANALYSIS ABNORMAL
     Dosage: 5000 MG/M2
     Dates: start: 20030714
  11. METHOTREXATE HD MTX 5000 MG/M2 ON STUDY COG# AALLOO31 [Suspect]
     Indication: ACUTE LYMPHOCYTIC LEUKAEMIA
     Dosage: 5000 MG/M2
     Dates: start: 20030912
  12. METHOTREXATE HD MTX 5000 MG/M2 ON STUDY COG# AALLOO31 [Suspect]
     Indication: CHROMOSOME ANALYSIS ABNORMAL
     Dosage: 5000 MG/M2
     Dates: start: 20030912
  13. METHOTREXATE HD MTX 5000 MG/M2 ON STUDY COG# AALLOO31 [Suspect]
     Indication: ACUTE LYMPHOCYTIC LEUKAEMIA
     Dosage: 5000 MG/M2
     Dates: start: 20031027
  14. METHOTREXATE HD MTX 5000 MG/M2 ON STUDY COG# AALLOO31 [Suspect]
     Indication: CHROMOSOME ANALYSIS ABNORMAL
     Dosage: 5000 MG/M2
     Dates: start: 20031027
  15. METHOTREXATE HD MTX 5000 MG/M2 ON STUDY COG# AALLOO31 [Suspect]
     Indication: ACUTE LYMPHOCYTIC LEUKAEMIA
     Dosage: 5000 MG/M2
     Dates: start: 20031218
  16. METHOTREXATE HD MTX 5000 MG/M2 ON STUDY COG# AALLOO31 [Suspect]
     Indication: CHROMOSOME ANALYSIS ABNORMAL
     Dosage: 5000 MG/M2
     Dates: start: 20031218
  17. METHOTREXATE HD MTX 5000 MG/M2 ON STUDY COG# AALLOO31 [Suspect]
     Indication: ACUTE LYMPHOCYTIC LEUKAEMIA
     Dosage: 5000 MG/M2
     Dates: start: 20040212
  18. METHOTREXATE HD MTX 5000 MG/M2 ON STUDY COG# AALLOO31 [Suspect]
     Indication: CHROMOSOME ANALYSIS ABNORMAL
     Dosage: 5000 MG/M2
     Dates: start: 20040212

REACTIONS (9)
  - BONE MARROW DISORDER [None]
  - ENTEROCOCCAL BACTERAEMIA [None]
  - ESCHERICHIA INFECTION [None]
  - GRAND MAL CONVULSION [None]
  - HYPERGLYCAEMIA [None]
  - NERVOUS SYSTEM DISORDER [None]
  - PANCYTOPENIA [None]
  - PNEUMONIA [None]
  - PNEUMONIA KLEBSIELLA [None]
